FAERS Safety Report 25971666 (Version 1)
Quarter: 2025Q4

REPORT INFORMATION
  Report Type: Spontaneous
  Country: GE (occurrence: GE)
  Receive Date: 20251029
  Receipt Date: 20251029
  Transmission Date: 20260118
  Serious: Yes (Other)
  Sender: ACCORD
  Company Number: GE-Accord-510375

PATIENT
  Age: 71 Year
  Sex: Female

DRUGS (4)
  1. ANASTROZOLE [Suspect]
     Active Substance: ANASTROZOLE
     Indication: HER2 negative breast cancer
     Dates: start: 202308
  2. RIBOCICLIB [Suspect]
     Active Substance: RIBOCICLIB
     Indication: HER2 negative breast cancer
     Dosage: ON A THREE-WEEK-ON/ONE-WEEK-OFF SCHEDULE
     Dates: start: 202308
  3. ANASTROZOLE [Suspect]
     Active Substance: ANASTROZOLE
     Indication: Breast cancer metastatic
     Dates: start: 202308
  4. RIBOCICLIB [Suspect]
     Active Substance: RIBOCICLIB
     Indication: Breast cancer metastatic
     Dosage: ON A THREE-WEEK-ON/ONE-WEEK-OFF SCHEDULE
     Dates: start: 202308

REACTIONS (1)
  - Neutropenia [Unknown]
